FAERS Safety Report 20763976 (Version 1)
Quarter: 2022Q2

REPORT INFORMATION
  Report Type: Spontaneous
  Country: US (occurrence: US)
  Receive Date: 20220428
  Receipt Date: 20220428
  Transmission Date: 20220720
  Serious: No
  Sender: FDA-Public Use
  Company Number: US-PFIZER INC-202200116303

PATIENT
  Age: 51 Year
  Sex: Female
  Weight: 68.04 kg

DRUGS (2)
  1. GABAPENTIN [Suspect]
     Active Substance: GABAPENTIN
     Indication: Neuralgia
     Dosage: 300 MG, 2X/DAY (ONE CAPSULE TWICE A DAY)
     Dates: start: 20220110
  2. CEFIXIME [Concomitant]
     Active Substance: CEFIXIME
     Dosage: UNK, 2X/DAY (5 MEGS TWICE A DAY)

REACTIONS (3)
  - Lip swelling [Recovered/Resolved]
  - Ulcer [Recovered/Resolved]
  - Mouth haemorrhage [Recovered/Resolved]

NARRATIVE: CASE EVENT DATE: 20220101
